FAERS Safety Report 8840440 (Version 1)
Quarter: 2012Q4

REPORT INFORMATION
  Report Type: 
  Country: US (occurrence: US)
  Receive Date: 20121015
  Receipt Date: 20121015
  Transmission Date: 20130627
  Serious: Yes (Death)
  Sender: FDA-Public Use
  Company Number: US-ROCHE-1120300

PATIENT
  Age: 64 Year
  Sex: Female

DRUGS (1)
  1. NUTROPIN [Suspect]
     Indication: DWARFISM

REACTIONS (1)
  - Myocardial infarction [Fatal]
